FAERS Safety Report 23087157 (Version 1)
Quarter: 2023Q4

REPORT INFORMATION
  Report Type: Spontaneous
  Country: US (occurrence: US)
  Receive Date: 20231020
  Receipt Date: 20231020
  Transmission Date: 20240110
  Serious: Yes (Hospitalization, Other)
  Sender: FDA-Public Use
  Company Number: US-SPECGX-T202302025

PATIENT
  Age: 25 Year
  Sex: Female

DRUGS (3)
  1. FENTANYL CITRATE [Suspect]
     Active Substance: FENTANYL CITRATE
     Indication: Product used for unknown indication
     Dosage: UNK
     Route: 065
  2. OXYCODONE [Suspect]
     Active Substance: OXYCODONE
     Indication: Product used for unknown indication
     Dosage: UNK
     Route: 065
  3. GABAPENTIN [Suspect]
     Active Substance: GABAPENTIN
     Indication: Product used for unknown indication
     Dosage: UNK
     Route: 065

REACTIONS (16)
  - Septic shock [Unknown]
  - Premature delivery [Unknown]
  - Pharyngeal abscess [Unknown]
  - Deep vein thrombosis [Unknown]
  - Streptococcal infection [Unknown]
  - Acute respiratory distress syndrome [Recovering/Resolving]
  - Condition aggravated [Recovering/Resolving]
  - Pneumothorax [Unknown]
  - Pneumonia [Unknown]
  - Respiratory failure [Recovering/Resolving]
  - Syncope [Unknown]
  - Overdose [Unknown]
  - Tracheostomy [Unknown]
  - Mechanical ventilation [Unknown]
  - Caesarean section [Unknown]
  - Exposure during pregnancy [Unknown]
